FAERS Safety Report 6923759-8 (Version None)
Quarter: 2010Q3

REPORT INFORMATION
  Report Type: 
  Country: None (occurrence: None)
  Receive Date: 20100813
  Receipt Date: 20100806
  Transmission Date: 20110219
  Serious: Yes (Hospitalization)
  Sender: FDA-Public Use
  Company Number: US-JNJFOC-20100802402

PATIENT
  Sex: Female
  Weight: 74.84 kg

DRUGS (6)
  1. TOPAMAX [Suspect]
     Indication: PAIN
     Route: 048
  2. EFFEXOR [Concomitant]
     Indication: INFLAMMATION
     Route: 048
  3. PREVACID [Concomitant]
     Indication: GASTRIC ULCER
     Route: 048
  4. CELEBREX [Concomitant]
     Indication: INFLAMMATION
     Route: 048
  5. NORCO [Concomitant]
     Indication: PAIN
     Dosage: 10/325MG AS NEEDED
     Route: 048
  6. DURAGESIC-100 [Concomitant]
     Indication: PAIN
     Dosage: 75 MCG +50 MCG
     Route: 062

REACTIONS (4)
  - DRUG EFFECT DECREASED [None]
  - INTENTIONAL DRUG MISUSE [None]
  - NASOPHARYNGITIS [None]
  - OSTEOMYELITIS [None]
